FAERS Safety Report 23596318 (Version 2)
Quarter: 2024Q2

REPORT INFORMATION
  Report Type: Spontaneous
  Country: US (occurrence: US)
  Receive Date: 20240305
  Receipt Date: 20240505
  Transmission Date: 20240715
  Serious: No
  Sender: FDA-Public Use
  Company Number: US-SA-SAC20240301000530

PATIENT
  Age: 8 Year
  Sex: Male

DRUGS (1)
  1. DUPIXENT [Suspect]
     Active Substance: DUPILUMAB
     Indication: Dermatitis atopic
     Dosage: 300 MG, Q4W
     Route: 058
     Dates: start: 202310

REACTIONS (8)
  - Epistaxis [Unknown]
  - Rash macular [Unknown]
  - Condition aggravated [Unknown]
  - Ocular hyperaemia [Recovered/Resolved]
  - Pruritus [Unknown]
  - Eye swelling [Unknown]
  - Conjunctivitis [Recovered/Resolved]
  - Therapeutic response shortened [Unknown]

NARRATIVE: CASE EVENT DATE: 20240401
